FAERS Safety Report 12940809 (Version 1)
Quarter: 2016Q4

REPORT INFORMATION
  Report Type: Spontaneous
  Country: BR (occurrence: BR)
  Receive Date: 20161115
  Receipt Date: 20161115
  Transmission Date: 20170207
  Serious: Yes (Death, Hospitalization, Other)
  Sender: FDA-Public Use
  Company Number: BR-TORRENT-00003684

PATIENT
  Age: 65 Year
  Sex: Female

DRUGS (3)
  1. RISPERIDONE. [Concomitant]
     Active Substance: RISPERIDONE
     Indication: CONFUSIONAL STATE
     Dosage: ONCE DAILY/ ORAL
     Route: 048
     Dates: start: 201601
  2. DONEPEZIL HYDROCHLORIDE. [Suspect]
     Active Substance: DONEPEZIL HYDROCHLORIDE
     Indication: MEMORY IMPAIRMENT
     Dosage: DONEPEZIL HYDROCHLORIDE 5 MG HALF OF A TABLET DAILY (AT NIGHT)/ ORAL
     Route: 048
     Dates: start: 201601
  3. ELIQUIS [Concomitant]
     Active Substance: APIXABAN
     Indication: ANTICOAGULANT THERAPY
     Dosage: ELIQUIS 2.5 MG TWICE DAILY/ ORAL
     Route: 048

REACTIONS (5)
  - Multiple organ dysfunction syndrome [Fatal]
  - Intestinal obstruction [Unknown]
  - Chest pain [Unknown]
  - Internal haemorrhage [Fatal]
  - Pneumonia [Unknown]

NARRATIVE: CASE EVENT DATE: 201608
